FAERS Safety Report 7654485-8 (Version None)
Quarter: 2011Q3

REPORT INFORMATION
  Report Type: 
  Country: None (occurrence: None)
  Receive Date: 20110803
  Receipt Date: 20110725
  Transmission Date: 20111222
  Serious: Yes (Hospitalization)
  Sender: FDA-Public Use
  Company Number: CA-AMGEN-CANSP2011037560

PATIENT
  Age: 68 Year
  Sex: Male
  Weight: 88 kg

DRUGS (6)
  1. CRESTOR [Concomitant]
     Route: 048
  2. PREVACID [Concomitant]
  3. ENBREL [Suspect]
     Indication: PRODUCT USED FOR UNKNOWN INDICATION
     Dosage: 50 MG, QWK
     Route: 058
     Dates: start: 20100701
  4. HYDROCHLOROTHIAZIDE [Concomitant]
     Route: 048
  5. MICARDIS [Concomitant]
     Route: 048
  6. NAPROXEN [Concomitant]

REACTIONS (1)
  - SKIN INDURATION [None]
